FAERS Safety Report 7033237-6 (Version None)
Quarter: 2010Q4

REPORT INFORMATION
  Report Type: 
  Country: None (occurrence: None)
  Receive Date: 20101007
  Receipt Date: 20100930
  Transmission Date: 20110411
  Serious: No
  Sender: FDA-Public Use
  Company Number: US-B.I. PHARMACEUTICALS,INC./RIDGEFIELD-2010-BP-09952BP

PATIENT
  Sex: Female

DRUGS (5)
  1. ZANTAC 150 [Suspect]
     Indication: DYSPEPSIA
     Route: 048
     Dates: start: 20100701, end: 20100817
  2. ZANTAC 150 [Suspect]
     Indication: GASTROOESOPHAGEAL REFLUX DISEASE
  3. ADVAIR DISKUS 100/50 [Concomitant]
     Indication: ASTHMA
     Route: 055
  4. ZYRTEC [Concomitant]
     Indication: SEASONAL ALLERGY
     Route: 048
  5. MEDICATION NOT FURTHER SPECIFIED [Concomitant]
     Indication: THYROID DISORDER

REACTIONS (4)
  - CHEST PAIN [None]
  - DYSGEUSIA [None]
  - DYSPEPSIA [None]
  - THROAT IRRITATION [None]
